FAERS Safety Report 10163649 (Version 2)
Quarter: 2014Q2

REPORT INFORMATION
  Report Type: Report from Study
  Country: CA (occurrence: CA)
  Receive Date: 20140509
  Receipt Date: 20140509
  Transmission Date: 20141212
  Serious: Yes (Hospitalization, Other)
  Sender: FDA-Public Use
  Company Number: CA-ABBVIE-14P-028-1207326-00

PATIENT
  Age: 36 Year
  Sex: Male
  Weight: 99 kg

DRUGS (2)
  1. HUMIRA [Suspect]
     Indication: CROHN^S DISEASE
     Route: 058
     Dates: start: 20090304, end: 2014
  2. HUMIRA [Suspect]
     Route: 058
     Dates: start: 2014

REACTIONS (7)
  - Intestinal anastomosis complication [Unknown]
  - White blood cell count decreased [Unknown]
  - Crohn^s disease [Recovering/Resolving]
  - Crohn^s disease [Unknown]
  - Psoas abscess [Unknown]
  - Intestinal obstruction [Recovering/Resolving]
  - Abdominal distension [Recovering/Resolving]
